FAERS Safety Report 16206129 (Version 2)
Quarter: 2019Q2

REPORT INFORMATION
  Report Type: Spontaneous
  Country: CN (occurrence: CN)
  Receive Date: 20190417
  Receipt Date: 20190425
  Transmission Date: 20190711
  Serious: Yes (Death, Other)
  Sender: FDA-Public Use
  Company Number: CN-ROCHE-2290442

PATIENT
  Age: 63 Year
  Sex: Male

DRUGS (13)
  1. CAPECITABINE. [Suspect]
     Active Substance: CAPECITABINE
     Indication: RECTAL CANCER
     Route: 048
  2. FLUOROURACIL. [Concomitant]
     Active Substance: FLUOROURACIL
     Route: 041
     Dates: start: 201708
  3. FLUOROURACIL. [Concomitant]
     Active Substance: FLUOROURACIL
     Route: 033
  4. OXALIPLATIN. [Concomitant]
     Active Substance: OXALIPLATIN
     Indication: RECTAL CANCER
     Route: 041
     Dates: start: 201703, end: 201705
  5. CALCIUM FOLINATE [Concomitant]
     Active Substance: LEUCOVORIN CALCIUM
     Indication: RECTAL CANCER
     Route: 041
     Dates: start: 201703, end: 201705
  6. FLUOROURACIL. [Concomitant]
     Active Substance: FLUOROURACIL
     Indication: RECTAL CANCER
     Route: 041
     Dates: start: 201703, end: 201705
  7. CAPECITABINE. [Suspect]
     Active Substance: CAPECITABINE
     Indication: METASTATIC LYMPHOMA
     Route: 048
  8. CALCIUM FOLINATE [Concomitant]
     Active Substance: LEUCOVORIN CALCIUM
     Indication: METASTATIC LYMPHOMA
     Route: 041
     Dates: start: 201708
  9. FLUOROURACIL. [Concomitant]
     Active Substance: FLUOROURACIL
     Indication: METASTATIC LYMPHOMA
     Route: 041
     Dates: start: 201703, end: 201705
  10. FLUOROURACIL. [Concomitant]
     Active Substance: FLUOROURACIL
     Route: 041
     Dates: start: 201708
  11. OXALIPLATIN. [Concomitant]
     Active Substance: OXALIPLATIN
     Indication: METASTATIC LYMPHOMA
     Route: 041
     Dates: start: 201708
  12. CISPLATIN. [Concomitant]
     Active Substance: CISPLATIN
     Indication: RECTAL CANCER
     Route: 033
  13. CISPLATIN. [Concomitant]
     Active Substance: CISPLATIN
     Indication: METASTATIC LYMPHOMA

REACTIONS (6)
  - Abdominal distension [Unknown]
  - Abdominal pain [Unknown]
  - Death [Fatal]
  - Ascites [Unknown]
  - Decreased appetite [Unknown]
  - Subileus [Unknown]

NARRATIVE: CASE EVENT DATE: 20170930
